FAERS Safety Report 6007970-9 (Version None)
Quarter: 2008Q4

REPORT INFORMATION
  Report Type: 
  Country: None (occurrence: None)
  Receive Date: 20081217
  Receipt Date: 20080620
  Transmission Date: 20090506
  Serious: No
  Sender: FDA-Public Use
  Company Number: US-ASTRAZENECA-2008UW12465

PATIENT
  Age: 55 Year
  Sex: Female
  Weight: 113.9 kg

DRUGS (7)
  1. CRESTOR [Suspect]
     Indication: BLOOD CHOLESTEROL INCREASED
     Route: 048
     Dates: start: 20071101
  2. BYETTA [Concomitant]
  3. ACTOS [Concomitant]
  4. GLIPIZIDE [Concomitant]
  5. AMBIEN [Concomitant]
  6. PROTONIX [Concomitant]
  7. HYDROCHLOROTHIAZIDE [Concomitant]

REACTIONS (2)
  - BLOOD GLUCOSE INCREASED [None]
  - NERVOUSNESS [None]
